FAERS Safety Report 8867765 (Version 1)
Quarter: 2012Q4

REPORT INFORMATION
  Report Type: 
  Country: US (occurrence: US)
  Receive Date: 20121025
  Receipt Date: 20121025
  Transmission Date: 20130627
  Serious: No
  Sender: FDA-Public Use
  Company Number: US-AMGEN-USASP2012018141

PATIENT
  Sex: Female

DRUGS (10)
  1. ENBREL [Suspect]
     Indication: PRODUCT USED FOR UNKNOWN INDICATION
     Dosage: 50 mg, qwk
     Route: 058
  2. CYMBALTA [Concomitant]
     Dosage: 20 mg, UNK
  3. SYNTHROID [Concomitant]
     Dosage: 100 mug, UNK
  4. BENICAR [Concomitant]
     Dosage: 20 mg, UNK
  5. FOLIC ACID [Concomitant]
  6. PLAQUENIL                          /00072603/ [Concomitant]
     Dosage: 200 mg, UNK
  7. ALEVE [Concomitant]
     Dosage: 220 mg, UNK
  8. LORAZEPAM [Concomitant]
     Dosage: 0.5 mg, UNK
  9. REQUIP [Concomitant]
     Dosage: 0.5 mg, UNK
  10. HYDROCODONE/APAP [Concomitant]

REACTIONS (1)
  - Drug ineffective [Unknown]
